FAERS Safety Report 7556912-3 (Version None)
Quarter: 2011Q2

REPORT INFORMATION
  Report Type: 
  Country: None (occurrence: None)
  Receive Date: 20110620
  Receipt Date: 20110606
  Transmission Date: 20111010
  Serious: Yes (Life-Threatening, Hospitalization)
  Sender: FDA-Public Use
  Company Number: PHHY2011DE51143

PATIENT
  Age: 72 Year
  Sex: Male

DRUGS (9)
  1. XARELTO [Interacting]
     Indication: THROMBOSIS PROPHYLAXIS
     Dosage: 10 MG, UNK
     Route: 048
     Dates: start: 20101005, end: 20101011
  2. OXYGESIC [Concomitant]
     Indication: PAIN
     Dosage: 10 MG, UNK
     Dates: start: 20101006, end: 20101012
  3. VOLTAREN [Interacting]
     Indication: PAIN
     Dosage: 75 MG, UNK
     Route: 048
     Dates: start: 20101006, end: 20101012
  4. ASPIRIN [Suspect]
     Indication: ARRHYTHMIA
     Dosage: 100 MG, UNK
     Route: 048
     Dates: start: 20070101, end: 20101003
  5. IBUPROFEN [Concomitant]
     Indication: PAIN
     Dosage: 800 MG, UNK
     Dates: end: 20101003
  6. LISINOPRIL [Concomitant]
     Indication: HYPERTENSION
     Dosage: 10 MG, UNK
     Dates: end: 20070101
  7. BISO LICH [Concomitant]
     Indication: ARRHYTHMIA
     Dosage: 2.5 MG, UNK
     Route: 048
     Dates: start: 20070101
  8. PANTOPRAZOLE [Concomitant]
     Indication: PROPHYLAXIS AGAINST GASTROINTESTINAL ULCER
     Dosage: UNK UKN, UNK
     Dates: start: 20101006, end: 20101012
  9. ACETAMINOPHEN [Concomitant]
     Indication: PAIN
     Dosage: 1000 MG, UNK
     Dates: start: 20101006, end: 20101008

REACTIONS (11)
  - HAEMORRHAGE [None]
  - ANAEMIA [None]
  - ARTERIAL STENOSIS [None]
  - HAEMOGLOBIN DECREASED [None]
  - HAEMATOMA [None]
  - DRUG INTERACTION [None]
  - TROPONIN INCREASED [None]
  - MYOCARDIAL ISCHAEMIA [None]
  - MYOCARDIAL INFARCTION [None]
  - CHEST DISCOMFORT [None]
  - ELECTROCARDIOGRAM ST SEGMENT DEPRESSION [None]
